FAERS Safety Report 23590464 (Version 1)
Quarter: 2024Q1

REPORT INFORMATION
  Report Type: Spontaneous
  Country: IT (occurrence: IT)
  Receive Date: 20240304
  Receipt Date: 20240304
  Transmission Date: 20240409
  Serious: Yes (Other)
  Sender: FDA-Public Use
  Company Number: IT-MINISAL02-971597

PATIENT
  Age: 64 Year
  Sex: Female

DRUGS (4)
  1. PEMETREXED [Suspect]
     Active Substance: PEMETREXED
     Indication: Non-small cell lung cancer
     Dosage: 690 MG CYCLIC ADMINISTRATION
     Route: 042
     Dates: start: 20240117, end: 20240117
  2. CARBOPLATIN [Suspect]
     Active Substance: CARBOPLATIN
     Indication: Non-small cell lung cancer
     Dosage: 400 MG CYCLIC ADMINISTRATION
     Route: 042
     Dates: start: 20240117, end: 20240117
  3. NIVOLUMAB [Suspect]
     Active Substance: NIVOLUMAB
     Indication: Non-small cell lung cancer
     Dosage: 360 MG CYCLIC ADMINISTRATION
     Route: 042
     Dates: start: 20240117, end: 20240117
  4. IPILIMUMAB [Suspect]
     Active Substance: IPILIMUMAB
     Indication: Non-small cell lung cancer
     Dosage: 50 MG CYCLIC ADMINISTRATION
     Route: 042
     Dates: start: 20240117, end: 20240117

REACTIONS (3)
  - Hypertransaminasaemia [Recovering/Resolving]
  - Diarrhoea [Recovering/Resolving]
  - Pruritus [Recovering/Resolving]

NARRATIVE: CASE EVENT DATE: 20240117
